FAERS Safety Report 22192080 (Version 1)
Quarter: 2023Q2

REPORT INFORMATION
  Report Type: Spontaneous
  Country: US (occurrence: US)
  Receive Date: 20230410
  Receipt Date: 20230410
  Transmission Date: 20230721
  Serious: No
  Sender: FDA-Public Use
  Company Number: US-BAYER-2023A044784

PATIENT
  Age: 54 Year
  Sex: Male

DRUGS (6)
  1. BETASERON [Suspect]
     Active Substance: INTERFERON BETA-1B
     Indication: Multiple sclerosis
  2. VITAMIN D NOS [Concomitant]
     Active Substance: VITAMIN D NOS
  3. OXYBUTYNIN [Concomitant]
     Active Substance: OXYBUTYNIN
  4. OXCARBAZEPINE [Concomitant]
     Active Substance: OXCARBAZEPINE
  5. AMITRIPTYLINE [Concomitant]
     Active Substance: AMITRIPTYLINE
  6. PRIMIDONE [Concomitant]
     Active Substance: PRIMIDONE

REACTIONS (1)
  - Injection site rash [None]
